FAERS Safety Report 17698918 (Version 1)
Quarter: 2020Q2

REPORT INFORMATION
  Report Type: Spontaneous
  Country: US (occurrence: US)
  Receive Date: 20200423
  Receipt Date: 20200423
  Transmission Date: 20200714
  Serious: Yes (Death)
  Sender: FDA-Public Use
  Company Number: None

PATIENT
  Age: 81 Year
  Sex: Male

DRUGS (12)
  1. AMITRIPTYLIN [Concomitant]
     Active Substance: AMITRIPTYLINE
  2. ISOSORB [Concomitant]
  3. TRADJENTA [Concomitant]
     Active Substance: LINAGLIPTIN
  4. FERROUS GLUC [Concomitant]
  5. PREDNISONE. [Concomitant]
     Active Substance: PREDNISONE
  6. LUPRON [Suspect]
     Active Substance: LEUPROLIDE ACETATE
     Indication: PROSTATE CANCER
     Dosage: ?          OTHER FREQUENCY:Q 6 MONTHS;?
     Route: 030
     Dates: start: 20151014
  7. DILT-XR [Concomitant]
     Active Substance: DILTIAZEM
  8. VITAMIN E [Concomitant]
     Active Substance: .ALPHA.-TOCOPHEROL
  9. PANTOPRAZOLE [Concomitant]
     Active Substance: PANTOPRAZOLE
  10. TYLENOL [Concomitant]
     Active Substance: ACETAMINOPHEN
  11. ASPIRIN. [Concomitant]
     Active Substance: ASPIRIN
  12. CARVEDILOL. [Concomitant]
     Active Substance: CARVEDILOL

REACTIONS (1)
  - Death [None]
